FAERS Safety Report 9916376 (Version 1)
Quarter: 2014Q1

REPORT INFORMATION
  Report Type: Spontaneous
  Country: US (occurrence: None)
  Receive Date: 20140219
  Receipt Date: 20140219
  Transmission Date: 20141002
  Serious: Yes (Hospitalization)
  Sender: FDA-Public Use
  Company Number: 2184391

PATIENT
  Age: 50 Year
  Sex: Male

DRUGS (1)
  1. PHENYTOIN [Suspect]
     Indication: CONVULSION
     Dosage: NOT REPORTED , UNKNOWN, UNKNOWN

REACTIONS (2)
  - Drug reaction with eosinophilia and systemic symptoms [None]
  - Thrombotic thrombocytopenic purpura [None]
